FAERS Safety Report 25521549 (Version 2)
Quarter: 2025Q3

REPORT INFORMATION
  Report Type: Report from Study
  Country: US (occurrence: US)
  Receive Date: 20250706
  Receipt Date: 20250809
  Transmission Date: 20251020
  Serious: Yes (Hospitalization, Other)
  Sender: ALEXION PHARMACEUTICALS
  Company Number: US-AstraZeneca-CH-00901421A

PATIENT
  Age: 19 Year
  Sex: Female
  Weight: 57.152 kg

DRUGS (1)
  1. ULTOMIRIS [Suspect]
     Active Substance: RAVULIZUMAB-CWVZ
     Indication: Atypical haemolytic uraemic syndrome
     Dosage: 3300 MILLIGRAM, Q8W
     Dates: start: 20220414

REACTIONS (9)
  - Bacteraemia [Unknown]
  - Meningitis [Unknown]
  - Pain [Unknown]
  - Pyrexia [Unknown]
  - Chills [Unknown]
  - Headache [Unknown]
  - Fatigue [Unknown]
  - Spinal pain [Unknown]
  - Back pain [Unknown]

NARRATIVE: CASE EVENT DATE: 20250627
